FAERS Safety Report 13511077 (Version 1)
Quarter: 2017Q2

REPORT INFORMATION
  Report Type: Spontaneous
  Country: AU (occurrence: AU)
  Receive Date: 20170503
  Receipt Date: 20170503
  Transmission Date: 20170830
  Serious: Yes (Hospitalization)
  Sender: FDA-Public Use
  Company Number: AU-GE HEALTHCARE LIFE SCIENCES-2017CSU001070

PATIENT

DRUGS (1)
  1. OMNIPAQUE [Suspect]
     Active Substance: IOHEXOL
     Indication: LYMPHOMA
     Dosage: 60 ML, SINGLE
     Route: 042
     Dates: start: 20170424, end: 20170424

REACTIONS (4)
  - Cold sweat [Recovering/Resolving]
  - Erythema [Recovering/Resolving]
  - Communication disorder [Recovering/Resolving]
  - Hyperhidrosis [Recovering/Resolving]

NARRATIVE: CASE EVENT DATE: 20170424
